FAERS Safety Report 13651363 (Version 2)
Quarter: 2017Q3

REPORT INFORMATION
  Report Type: Report from Study
  Country: BR (occurrence: BR)
  Receive Date: 20170614
  Receipt Date: 20170713
  Transmission Date: 20171127
  Serious: Yes (Hospitalization, Other)
  Sender: FDA-Public Use
  Company Number: PHHY2017BR068402

PATIENT
  Sex: Male
  Weight: 68 kg

DRUGS (5)
  1. EXELON PATCH [Suspect]
     Active Substance: RIVASTIGMINE
     Indication: MEMORY IMPAIRMENT
     Dosage: 9.5 MG, QD (18 MG/10 CM2 30 PATCHES)
     Route: 062
  2. SERTRALINE [Concomitant]
     Active Substance: SERTRALINE HYDROCHLORIDE
     Indication: NERVOUSNESS
     Dosage: 1 DF, QD (FOR 4 MONTHS)
     Route: 065
  3. EXELON PATCH [Suspect]
     Active Substance: RIVASTIGMINE
     Indication: DEMENTIA ALZHEIMER^S TYPE
  4. SOMALGIN [Concomitant]
     Active Substance: ASPIRIN\DIHYDROXYALUMINUM AMINOACETATE ANHYDROUS\MAGNESIUM CARBONATE
     Indication: ANTICOAGULANT THERAPY
     Dosage: 1 DF, QD (FOR 4 MONTHS)
     Route: 065
  5. EXELON [Suspect]
     Active Substance: RIVASTIGMINE TARTRATE
     Indication: DEMENTIA ALZHEIMER^S TYPE
     Dosage: 2 DF, QD
     Route: 065

REACTIONS (3)
  - Incorrect drug administration duration [Unknown]
  - Pneumonia [Recovering/Resolving]
  - Hypertrichosis [Recovering/Resolving]
